FAERS Safety Report 11643922 (Version 1)
Quarter: 2015Q4

REPORT INFORMATION
  Report Type: Not Available
  Country: GB (occurrence: GB)
  Receive Date: 20151020
  Receipt Date: 20151020
  Transmission Date: 20160304
  Serious: Yes (Hospitalization)
  Sender: FDA-Public Use
  Company Number: GB-MUNDIPHARMA DS AND PHARMACOVIGILANCE-GBR-2015-0031325

PATIENT
  Sex: Male
  Weight: 92 kg

DRUGS (10)
  1. MORPHINE SULFATE/NALTREXONE HYDROCHLORIDE [Suspect]
     Active Substance: MORPHINE SULFATE\NALTREXONE HYDROCHLORIDE
     Indication: PAIN
     Dosage: UNK
     Route: 048
  2. ORAMORPH [Suspect]
     Active Substance: MORPHINE SULFATE
     Indication: PAIN
     Dosage: UNK
     Route: 048
  3. QUININE [Concomitant]
     Active Substance: QUININE
  4. MORPHINE SULFATE/NALTREXONE HYDROCHLORIDE [Suspect]
     Active Substance: MORPHINE SULFATE\NALTREXONE HYDROCHLORIDE
     Indication: ARACHNOIDITIS
     Dosage: UNK
     Route: 048
     Dates: start: 2005
  5. GABAPENTIN. [Concomitant]
     Active Substance: GABAPENTIN
  6. PROTHIADEN [Concomitant]
     Active Substance: DOTHIEPIN HYDROCHLORIDE
  7. ORAMORPH [Suspect]
     Active Substance: MORPHINE SULFATE
     Indication: ARACHNOIDITIS
     Dosage: UNK
     Route: 048
     Dates: start: 2005
  8. CO-AMILOZIDE [Concomitant]
     Active Substance: AMILORIDE HYDROCHLORIDE\HYDROCHLOROTHIAZIDE
  9. RAMIPRIL. [Concomitant]
     Active Substance: RAMIPRIL
  10. PARACETAMOL [Concomitant]
     Active Substance: ACETAMINOPHEN

REACTIONS (6)
  - Oxygen saturation decreased [Unknown]
  - Somnolence [Unknown]
  - Learning disorder [Unknown]
  - Hypersomnia [Unknown]
  - Memory impairment [Unknown]
  - Sleep apnoea syndrome [Recovering/Resolving]

NARRATIVE: CASE EVENT DATE: 2015
